FAERS Safety Report 20758305 (Version 1)
Quarter: 2022Q2

REPORT INFORMATION
  Report Type: Spontaneous
  Country: US (occurrence: US)
  Receive Date: 20220427
  Receipt Date: 20220427
  Transmission Date: 20220721
  Serious: No
  Sender: FDA-Public Use
  Company Number: US-MYLANLABS-2022M1027876

PATIENT
  Age: 53 Year
  Sex: Female

DRUGS (2)
  1. ESTRADIOL [Interacting]
     Active Substance: ESTRADIOL
     Indication: Product used for unknown indication
     Dosage: UNK, (ONCE-WEEKLY)
     Route: 062
  2. COMBIPATCH [Interacting]
     Active Substance: ESTRADIOL\NORETHINDRONE ACETATE
     Indication: Menopause
     Dosage: 0.05/0.14 MILLIGRAM
     Dates: start: 20211201

REACTIONS (2)
  - Vaginal haemorrhage [Not Recovered/Not Resolved]
  - Drug interaction [Unknown]
